FAERS Safety Report 24598306 (Version 1)
Quarter: 2024Q4

REPORT INFORMATION
  Report Type: Spontaneous
  Country: US (occurrence: US)
  Receive Date: 20241110
  Receipt Date: 20241110
  Transmission Date: 20250115
  Serious: No
  Sender: SANOFI AVENTIS
  Company Number: US-SANOFI-02273178

PATIENT
  Age: 69 Year
  Sex: Male

DRUGS (1)
  1. TOUJEO MAX [Suspect]
     Active Substance: INSULIN GLARGINE
     Indication: Diabetes mellitus
     Dosage: 100 U
     Route: 065

REACTIONS (1)
  - Product dispensing error [Unknown]
